FAERS Safety Report 5262026-8 (Version None)
Quarter: 2007Q1

REPORT INFORMATION
  Report Type: 
  Country: None (occurrence: None)
  Receive Date: 20061208
  Receipt Date: 20060731
  Transmission Date: 20070707
  Serious: Yes (Other)
  Sender: FDA-Public Use
  Company Number: USA-2006-0024824

PATIENT
  Age: 24 Year
  Sex: Female

DRUGS (1)
  1. OXYCONTIN [Suspect]
     Indication: DRUG ABUSER

REACTIONS (3)
  - DRUG ABUSER [None]
  - INJURY [None]
  - ROAD TRAFFIC ACCIDENT [None]
